FAERS Safety Report 16897842 (Version 1)
Quarter: 2019Q4

REPORT INFORMATION
  Report Type: Spontaneous
  Country: ES (occurrence: ES)
  Receive Date: 20191009
  Receipt Date: 20191009
  Transmission Date: 20200122
  Serious: Yes (Life-Threatening, Hospitalization)
  Sender: FDA-Public Use
  Company Number: ES-TEVA-2019-ES-1118991

PATIENT
  Age: 65 Year
  Sex: Male

DRUGS (6)
  1. MICOFENOLATO DE MOFETILO (7330LM) [Suspect]
     Active Substance: MYCOPHENOLATE MOFETIL
     Indication: LIVER TRANSPLANT
     Dosage: 1 GRAM, 1 DAY
     Route: 048
     Dates: start: 201212
  2. AUGMENTINE 875 MG/125 MG COMPRIMIDOS RECUBIERTOS CON PELICULA , 20 COM [Concomitant]
     Indication: RESPIRATORY TRACT INFECTION
     Dosage: 3 DF, 875 MG / 125 MG; 20 TABLETS
     Route: 048
     Dates: start: 20180319, end: 20180419
  3. CEFTRIAXONA (501A) [Concomitant]
     Active Substance: CEFTRIAXONE
     Indication: GENITOURINARY TRACT INFECTION
     Dosage: 1 GRAM, 1 DAY
     Route: 042
     Dates: start: 20180418, end: 20180419
  4. TACROLIMUS (2694A) [Interacting]
     Active Substance: TACROLIMUS
     Indication: LIVER TRANSPLANT
     Dosage: 1500 MG, 1 DAY
     Route: 048
     Dates: start: 201212
  5. TAMSULOSINA HIDROCLORURO (2751CH) [Concomitant]
     Active Substance: TAMSULOSIN HYDROCHLORIDE
     Dosage: 0.4 MG, 1 DAY
     Route: 048
     Dates: start: 201212, end: 20180419
  6. GABAPENTINA (2641A) [Concomitant]
     Active Substance: GABAPENTIN
     Dosage: 300 MG, 1 DAY
     Route: 048
     Dates: start: 20160107, end: 20180419

REACTIONS (2)
  - Hypomagnesaemia [Recovered/Resolved]
  - Drug interaction [Unknown]

NARRATIVE: CASE EVENT DATE: 20180420
